FAERS Safety Report 17756731 (Version 3)
Quarter: 2020Q3

REPORT INFORMATION
  Report Type: Spontaneous
  Country: SE (occurrence: SE)
  Receive Date: 20200507
  Receipt Date: 20200902
  Transmission Date: 20201102
  Serious: Yes (Hospitalization)
  Sender: FDA-Public Use
  Company Number: SE-ASTRAZENECA-2020SE59503

PATIENT
  Age: 35 Year
  Sex: Female
  Weight: 70 kg

DRUGS (8)
  1. DOLUTEGRAVIR [Suspect]
     Active Substance: DOLUTEGRAVIR
     Indication: HIV INFECTION
     Dosage: 50.0MG UNKNOWN
     Route: 065
     Dates: start: 20190208
  2. ABACAVIR. [Suspect]
     Active Substance: ABACAVIR
     Indication: HIV INFECTION
     Dosage: 600.0MG UNKNOWN
     Route: 065
     Dates: start: 20190208
  3. KIVEXA [Suspect]
     Active Substance: ABACAVIR SULFATE\LAMIVUDINE
     Indication: HIV INFECTION
     Dosage: 1.0DF UNKNOWN
     Route: 065
     Dates: start: 20181003
  4. LERGIGAN (PROMETHAZINE HYDROCHLORIDE) [Suspect]
     Active Substance: PROMETHAZINE HYDROCHLORIDE
     Indication: PRURITUS
     Dosage: 25.0MG UNKNOWN
     Route: 065
     Dates: start: 20200207, end: 20200225
  5. TAVEGYL [Suspect]
     Active Substance: CLEMASTINE FUMARATE
     Indication: PRURITUS
     Dosage: 1.0MG UNKNOWN
     Route: 065
     Dates: start: 20200207, end: 20200225
  6. LAMIVUDINE. [Suspect]
     Active Substance: LAMIVUDINE
     Indication: HIV INFECTION
     Dosage: 300.0MG UNKNOWN
     Route: 065
     Dates: start: 20190208
  7. OMEPRAZOLE. [Suspect]
     Active Substance: OMEPRAZOLE
     Indication: GASTRITIS
     Dosage: UNK, 1 AS NEEDED
     Route: 048
  8. DIVISUN [Suspect]
     Active Substance: CHOLECALCIFEROL
     Indication: VITAMIN D DEFICIENCY
     Route: 065
     Dates: start: 20181213

REACTIONS (2)
  - Exposure during pregnancy [Recovered/Resolved]
  - Postpartum haemorrhage [Unknown]

NARRATIVE: CASE EVENT DATE: 20190615
